FAERS Safety Report 6806822-1 (Version None)
Quarter: 2010Q2

REPORT INFORMATION
  Report Type: 
  Country: None (occurrence: None)
  Receive Date: 20100629
  Receipt Date: 20100617
  Transmission Date: 20101027
  Serious: Yes (Other)
  Sender: FDA-Public Use
  Company Number: US-ELI_LILLY_AND_COMPANY-US201004006564

PATIENT
  Sex: Female
  Weight: 81.179 kg

DRUGS (13)
  1. ADCIRCA [Suspect]
     Dosage: 1 D/F, UNK
     Route: 048
     Dates: start: 20091223
  2. FUROSEMIDE [Concomitant]
     Dosage: 40 MG, EACH MORNING
     Route: 048
  3. FUROSEMIDE [Concomitant]
     Dosage: 20 MG, DAILY (1/D)
     Route: 048
  4. FUROSEMIDE [Concomitant]
     Dosage: 40 MG, EACH EVENING
  5. SPIRONOLACTONE [Concomitant]
     Dosage: 50 MG, DAILY (1/D)
     Route: 048
  6. SEROQUEL [Concomitant]
     Dosage: 50 MG, 3/D
  7. SEROQUEL [Concomitant]
     Dosage: 25 MG, DAILY (1/D)
     Route: 048
  8. SEROQUEL [Concomitant]
     Dosage: 50 MG, EACH EVENING
     Route: 048
  9. MELATONIN [Concomitant]
     Dosage: 3 MG, EACH EVENING
     Route: 048
  10. POTASSIUM CHLORIDE [Concomitant]
     Dosage: 10 MEQ, 3/D
     Route: 048
  11. LORAZEPAM [Concomitant]
     Dosage: 2 MG, 2/D
     Route: 048
  12. AMLODIPINE [Concomitant]
     Dosage: 5 MG, 2/D
     Route: 048
  13. WARFARIN [Concomitant]
     Dosage: 5 MG, UNK
     Route: 048

REACTIONS (6)
  - BLINDNESS [None]
  - DIPLOPIA [None]
  - PRESYNCOPE [None]
  - STRABISMUS [None]
  - VISUAL ACUITY REDUCED [None]
  - VISUAL IMPAIRMENT [None]
